FAERS Safety Report 4543161-6 (Version None)
Quarter: 2005Q1

REPORT INFORMATION
  Report Type: 
  Country: None (occurrence: None)
  Receive Date: 20050103
  Receipt Date: 20041221
  Transmission Date: 20050727
  Serious: Yes (Other)
  Sender: FDA-Public Use
  Company Number: GB-JNJFOC-20041206419

PATIENT
  Sex: Female

DRUGS (2)
  1. RISPERDAL [Suspect]
     Indication: DRUG USE FOR UNKNOWN INDICATION
  2. OLANZAPINE [Concomitant]

REACTIONS (1)
  - ANAEMIA MEGALOBLASTIC [None]
